FAERS Safety Report 5018750-5 (Version None)
Quarter: 2006Q2

REPORT INFORMATION
  Report Type: 
  Country: None (occurrence: None)
  Receive Date: 20060525
  Receipt Date: 20060510
  Transmission Date: 20061013
  Serious: Yes (Other)
  Sender: FDA-Public Use
  Company Number: B0424480A

PATIENT
  Sex: Female

DRUGS (3)
  1. PAXIL [Suspect]
     Indication: ANTIDEPRESSANT THERAPY
  2. SERTRALINE [Suspect]
     Indication: ANTIDEPRESSANT THERAPY
  3. CITALOPRAM HYDROBROMIDE [Concomitant]

REACTIONS (2)
  - AGGRESSION [None]
  - DISINHIBITION [None]
